FAERS Safety Report 6856286-7 (Version None)
Quarter: 2010Q3

REPORT INFORMATION
  Report Type: 
  Country: None (occurrence: None)
  Receive Date: 20100719
  Receipt Date: 20100715
  Transmission Date: 20110219
  Serious: Yes (Death)
  Sender: FDA-Public Use
  Company Number: PHHY2010CA04962

PATIENT
  Sex: Male

DRUGS (3)
  1. EXJADE [Suspect]
     Indication: MYELOPROLIFERATIVE DISORDER
     Dosage: 1500 MG, QD
     Route: 048
     Dates: start: 20080901
  2. HYDROXYUREA [Concomitant]
  3. PERCOCET [Concomitant]

REACTIONS (6)
  - ARTHRALGIA [None]
  - DEATH [None]
  - GAIT DISTURBANCE [None]
  - GOUT [None]
  - HAEMARTHROSIS [None]
  - JOINT SPRAIN [None]
